FAERS Safety Report 5896699-3 (Version None)
Quarter: 2008Q3

REPORT INFORMATION
  Report Type: 
  Country: None (occurrence: None)
  Receive Date: 20080924
  Receipt Date: 20080912
  Transmission Date: 20090109
  Serious: Yes (Hospitalization, Other)
  Sender: FDA-Public Use
  Company Number: US-PFIZER INC-2008078332

PATIENT
  Sex: Female

DRUGS (15)
  1. CHANTIX [Suspect]
     Indication: EX-TOBACCO USER
     Dates: start: 20080912
  2. CYMBALTA [Concomitant]
  3. KLONOPIN [Concomitant]
  4. BACLOFEN [Concomitant]
  5. LIPITOR [Concomitant]
  6. LASIX [Concomitant]
  7. CAPOTEN [Concomitant]
  8. METOPROLOL TARTRATE [Concomitant]
  9. PRILOSEC [Concomitant]
  10. ATARAX [Concomitant]
  11. ANALGESICS [Concomitant]
  12. NEURONTIN [Concomitant]
  13. SPIRIVA [Concomitant]
  14. OTHER RESPIRATORY SYSTEM PRODUCTS [Concomitant]
  15. DRUG, UNSPECIFIED [Concomitant]

REACTIONS (3)
  - ACTIVITIES OF DAILY LIVING IMPAIRED [None]
  - CARDIAC FAILURE CONGESTIVE [None]
  - DISTURBANCE IN ATTENTION [None]
